FAERS Safety Report 23608772 (Version 1)
Quarter: 2024Q1

REPORT INFORMATION
  Report Type: Spontaneous
  Country: CN (occurrence: CN)
  Receive Date: 20240308
  Receipt Date: 20240308
  Transmission Date: 20240409
  Serious: Yes (Other)
  Sender: FDA-Public Use
  Company Number: CN-Merck Healthcare KGaA-2024010939

PATIENT
  Age: 36 Year
  Sex: Male
  Weight: 86 kg

DRUGS (1)
  1. GLUCOPHAGE XR [Suspect]
     Active Substance: METFORMIN HYDROCHLORIDE
     Indication: Type 2 diabetes mellitus
     Route: 048
     Dates: start: 2018, end: 2021

REACTIONS (6)
  - Large intestine polyp [Not Recovered/Not Resolved]
  - Chronic gastritis [Not Recovered/Not Resolved]
  - Gastric polyps [Not Recovered/Not Resolved]
  - Proctitis [Not Recovered/Not Resolved]
  - Diabetes mellitus inadequate control [Unknown]
  - Off label use [Unknown]

NARRATIVE: CASE EVENT DATE: 20191121
